FAERS Safety Report 9464889 (Version 1)
Quarter: 2013Q3

REPORT INFORMATION
  Report Type: Spontaneous
  Country: US (occurrence: US)
  Receive Date: 20130819
  Receipt Date: 20130819
  Transmission Date: 20140515
  Serious: No
  Sender: FDA-Public Use
  Company Number: US-BAYER-2013-099895

PATIENT
  Age: 65 Year
  Sex: Female

DRUGS (3)
  1. ALEVE CAPLET [Suspect]
     Indication: ANALGESIC THERAPY
     Dosage: 2 DF, PRN
     Route: 048
     Dates: start: 201305, end: 20130813
  2. ACETAMINOPHEN [Concomitant]
     Dosage: UNK
  3. IBUPROFEN [Concomitant]
     Dosage: UNK

REACTIONS (2)
  - Drug ineffective [None]
  - Drug ineffective [None]
